FAERS Safety Report 17263212 (Version 1)
Quarter: 2019Q4

REPORT INFORMATION
  Report Type: Spontaneous
  Country: US (occurrence: US)
  Receive Date: 20191218
  Receipt Date: 20191218
  Transmission Date: 20200122
  Serious: Yes (Disabling)
  Sender: FDA-Public Use
  Company Number: None

PATIENT
  Age: 22 Year
  Sex: Male
  Weight: 79.38 kg

DRUGS (6)
  1. EXCEDRIN [Concomitant]
     Active Substance: ACETAMINOPHEN\ASPIRIN\CAFFEINE
  2. TYLENOL [Concomitant]
     Active Substance: ACETAMINOPHEN
  3. VISBIOME [Concomitant]
  4. AIMOVIG [Suspect]
     Active Substance: ERENUMAB-AOOE
     Indication: HEADACHE
     Dosage: ?          QUANTITY:2 INJECTIONS;OTHER ROUTE:INJECTION?
     Dates: start: 201808, end: 201909
  5. ADVIL [Concomitant]
     Active Substance: IBUPROFEN
  6. IBGARD [Concomitant]

REACTIONS (13)
  - Sleep disorder [None]
  - Chills [None]
  - Back pain [None]
  - Arthralgia [None]
  - Abdominal pain [None]
  - Headache [None]
  - Neck pain [None]
  - Musculoskeletal pain [None]
  - Dyspnoea [None]
  - Palpitations [None]
  - Chest pain [None]
  - Pain [None]
  - Tinnitus [None]

NARRATIVE: CASE EVENT DATE: 2018
